FAERS Safety Report 22015336 (Version 1)
Quarter: 2023Q1

REPORT INFORMATION
  Report Type: Spontaneous
  Country: TW (occurrence: TW)
  Receive Date: 20230221
  Receipt Date: 20230221
  Transmission Date: 20230418
  Serious: Yes (Other)
  Sender: FDA-Public Use
  Company Number: TW-002147023-NVSC2023TW034667

PATIENT
  Age: 41 Year
  Sex: Female

DRUGS (5)
  1. ERYTHROMYCIN [Suspect]
     Active Substance: ERYTHROMYCIN
     Indication: Escherichia infection
     Dosage: 250 MG, Q6H
     Route: 048
  2. ERYTHROMYCIN [Suspect]
     Active Substance: ERYTHROMYCIN
     Indication: Bacterial vulvovaginitis
  3. BETAMETHASONE [Suspect]
     Active Substance: BETAMETHASONE
     Indication: Product used for unknown indication
     Dosage: UNK
     Route: 065
  4. AMPICILLIN [Suspect]
     Active Substance: AMPICILLIN
     Indication: Escherichia infection
     Dosage: 1 G, Q4H, (INITIATED EMPIRICALLY AT 30 WEEKS)
     Route: 051
  5. AMPICILLIN [Suspect]
     Active Substance: AMPICILLIN
     Indication: Bacterial vulvovaginitis
     Dosage: 2 G, Q6H
     Route: 051

REACTIONS (3)
  - Premature labour [Unknown]
  - Premature delivery [Unknown]
  - Maternal exposure during pregnancy [Unknown]
